FAERS Safety Report 16450905 (Version 4)
Quarter: 2019Q3

REPORT INFORMATION
  Report Type: Spontaneous
  Country: JP (occurrence: JP)
  Receive Date: 20190619
  Receipt Date: 20190916
  Transmission Date: 20191004
  Serious: Yes (Hospitalization, Other)
  Sender: FDA-Public Use
  Company Number: JP-PFIZER INC-2019257548

PATIENT
  Age: 69 Year
  Sex: Female
  Weight: 66.5 kg

DRUGS (4)
  1. RAMUCIRUMAB [Suspect]
     Active Substance: RAMUCIRUMAB
     Indication: NON-SMALL CELL LUNG CANCER STAGE I
     Dosage: 10 MG/KG, EVERY 3 WEEKS (AFTER EIGHT COURSES) (EVERY 3 WEEKS, RAMUCIRUMAB 665MG/BODY)
     Route: 042
  2. BEVACIZUMAB. [Suspect]
     Active Substance: BEVACIZUMAB
     Indication: NON-SMALL CELL LUNG CANCER STAGE I
     Dosage: UNK, CYCLIC (RECEIVED 38 COURSES)
  3. DOCETAXEL. [Suspect]
     Active Substance: DOCETAXEL
     Indication: NON-SMALL CELL LUNG CANCER STAGE I
     Dosage: 60 MG/M2, EVERY 3 WEEKS (AFTER EIGHT COURSES) (DOCETAXEL 100MG/BODY)
     Route: 042
  4. RAMUCIRUMAB [Suspect]
     Active Substance: RAMUCIRUMAB
     Dosage: EVERY 4 WEEKS, RAMUCIRUMAB 665MG/BODY
     Route: 042

REACTIONS (3)
  - Skin erosion [Recovered/Resolved]
  - Ascites [Recovered/Resolved]
  - Chylothorax [Recovered/Resolved]
